FAERS Safety Report 10208067 (Version 1)
Quarter: 2014Q2

REPORT INFORMATION
  Report Type: Spontaneous
  Country: US (occurrence: None)
  Receive Date: 20140528
  Receipt Date: 20140528
  Transmission Date: 20141212
  Serious: Yes (Life-Threatening, Hospitalization, Disabling)
  Sender: FDA-Public Use
  Company Number: None

PATIENT
  Age: 77 Year
  Sex: Male
  Weight: 74.84 kg

DRUGS (12)
  1. DESMOPRESIN [Suspect]
     Indication: VON WILLEBRAND^S DISEASE
     Dosage: SWA 401N 23 MCG 10 ML FROM HOSPITAL RECORD ?1 IV?I IV PRIOR TO LASER SURGERY ?IV
     Route: 042
     Dates: start: 20140408, end: 20140408
  2. RAMIPRIL [Concomitant]
  3. SIMVASTATIN [Concomitant]
  4. DIAZEPAM [Concomitant]
  5. NASACOURT AQ NASAL SPRAY [Concomitant]
  6. ATROVENT NASAL SPRAY [Concomitant]
  7. PRILOSEC [Concomitant]
  8. MUCINEX [Concomitant]
  9. ASPIRIN [Concomitant]
  10. ACETAMINOPHEN [Concomitant]
  11. VITAMIN C [Concomitant]
  12. MULTIPLE VITAMIN + MINERAL ( NO IRON) [Concomitant]

REACTIONS (10)
  - Hyponatraemia [None]
  - Asthenia [None]
  - Confusional state [None]
  - Apparent death [None]
  - Loss of consciousness [None]
  - Electrolyte imbalance [None]
  - Diarrhoea [None]
  - Abdominal distension [None]
  - Peripheral swelling [None]
  - Activities of daily living impaired [None]
